FAERS Safety Report 4662074-2 (Version None)
Quarter: 2005Q2

REPORT INFORMATION
  Report Type: 
  Country: None (occurrence: None)
  Receive Date: 20050516
  Receipt Date: 20050506
  Transmission Date: 20051028
  Serious: Yes (Hospitalization, Other)
  Sender: FDA-Public Use
  Company Number: US-JNJFOC-20050303574

PATIENT
  Sex: Female
  Weight: 66.68 kg

DRUGS (6)
  1. REMICADE [Suspect]
     Route: 042
  2. REMICADE [Suspect]
     Indication: CROHN'S DISEASE
     Route: 042
  3. 6-MP [Concomitant]
     Indication: CROHN'S DISEASE
  4. PENTASA [Concomitant]
  5. PREDNISONE TAB [Concomitant]
  6. LEVAQUIN [Concomitant]

REACTIONS (15)
  - APPENDICITIS [None]
  - ARTHRALGIA [None]
  - COUGH [None]
  - DIARRHOEA HAEMORRHAGIC [None]
  - DIZZINESS [None]
  - HYPERHIDROSIS [None]
  - INFUSION RELATED REACTION [None]
  - LABORATORY TEST ABNORMAL [None]
  - LOSS OF CONSCIOUSNESS [None]
  - MUSCLE SPASMS [None]
  - PAIN [None]
  - PAIN IN EXTREMITY [None]
  - RASH [None]
  - RASH PRURITIC [None]
  - RESPIRATORY DISORDER [None]
